FAERS Safety Report 11194449 (Version 1)
Quarter: 2015Q2

REPORT INFORMATION
  Report Type: Spontaneous
  Country: US (occurrence: US)
  Receive Date: 20150616
  Receipt Date: 20150616
  Transmission Date: 20150821
  Serious: Yes (Other)
  Sender: FDA-Public Use
  Company Number: PHEH2015US011245

PATIENT
  Age: 6 Year
  Sex: Male

DRUGS (1)
  1. DEXMETHYLPHENIDATE HYDROCHLORIDE. [Suspect]
     Active Substance: DEXMETHYLPHENIDATE HYDROCHLORIDE
     Indication: ATTENTION DEFICIT/HYPERACTIVITY DISORDER
     Dosage: 5 MG, UNK
     Route: 065

REACTIONS (8)
  - Distractibility [Recovered/Resolved]
  - Anxiety [Unknown]
  - Mydriasis [Recovered/Resolved]
  - Abnormal behaviour [Recovered/Resolved]
  - Tachycardia [Unknown]
  - Enuresis [Recovered/Resolved]
  - Decreased appetite [Recovered/Resolved]
  - Aggression [Unknown]
